FAERS Safety Report 4789078-3 (Version None)
Quarter: 2005Q4

REPORT INFORMATION
  Report Type: 
  Country: None (occurrence: None)
  Receive Date: 20051005
  Receipt Date: 20050610
  Transmission Date: 20060501
  Serious: Yes (Death, Hospitalization)
  Sender: FDA-Public Use
  Company Number: US-MERCK-0506USA02005

PATIENT
  Age: 69 Year
  Sex: Female
  Weight: 91 kg

DRUGS (3)
  1. VIOXX [Suspect]
     Indication: ARTHRITIS
     Route: 048
     Dates: start: 20000601, end: 20001001
  2. PREDNISONE [Concomitant]
     Indication: HEPATITIS C
     Route: 065
     Dates: start: 19840101, end: 20001001
  3. NOVOLIN N [Concomitant]
     Indication: DIABETES MELLITUS
     Route: 058
     Dates: start: 19840101, end: 20001001

REACTIONS (3)
  - CEREBROVASCULAR ACCIDENT [None]
  - DEATH [None]
  - MYOCARDIAL INFARCTION [None]
